FAERS Safety Report 24675870 (Version 1)
Quarter: 2024Q4

REPORT INFORMATION
  Report Type: Report from Study
  Country: NL (occurrence: NL)
  Receive Date: 20241128
  Receipt Date: 20241128
  Transmission Date: 20250115
  Serious: Yes (Hospitalization)
  Sender: ABBVIE
  Company Number: NL-ABBVIE-6018481

PATIENT
  Age: 71 Year
  Sex: Male

DRUGS (9)
  1. CARBIDOPA\LEVODOPA [Suspect]
     Active Substance: CARBIDOPA\LEVODOPA
     Indication: Parkinson^s disease
     Dosage: LD:0.00ML; BIR:0.83ML/H; HIR:0.83ML/H; LIR:0.48ML/H; ED:0.30ML. REMAINS AT 24 HOURS
     Route: 058
     Dates: start: 20241029, end: 20241031
  2. CARBIDOPA\LEVODOPA [Suspect]
     Active Substance: CARBIDOPA\LEVODOPA
     Dosage: BIR:0.83ML/H; LIR:0.51ML/H; ED:0.30ML.REMAINS AT 24 HOURS
     Route: 058
     Dates: start: 20241031, end: 20241106
  3. CARBIDOPA\LEVODOPA [Suspect]
     Active Substance: CARBIDOPA\LEVODOPA
     Dosage: BIR:0.89ML/H; LIR:0.45ML/H; ED:0.30ML. REMAINS AT 24 HOURS
     Route: 058
     Dates: start: 20240924, end: 20241008
  4. CARBIDOPA\LEVODOPA [Suspect]
     Active Substance: CARBIDOPA\LEVODOPA
     Dosage: BIR:0.83ML/H; HIR:0.83ML/H; LIR:0.52ML/H; ED:0.30ML. REMAINS AT 24 HOURS
     Route: 058
     Dates: start: 20241008, end: 20241011
  5. CARBIDOPA\LEVODOPA [Suspect]
     Active Substance: CARBIDOPA\LEVODOPA
     Dosage: LD:0.00ML; BIR:0.81ML/H; HIR:0.81ML/H; LIR:0.49ML/H; ED:0.30ML. REMAINS AT 24 HOURS
     Route: 058
     Dates: start: 20241024, end: 20241029
  6. CARBIDOPA\LEVODOPA [Suspect]
     Active Substance: CARBIDOPA\LEVODOPA
     Dosage: LD:0.00ML; BIR:0.80ML/H; HIR:0.80ML/H; LIR:0.40ML/H; ED:0.20ML?GOES TO 24 HOURS
     Route: 058
     Dates: start: 20240923, end: 20240924
  7. CARBIDOPA\LEVODOPA [Suspect]
     Active Substance: CARBIDOPA\LEVODOPA
     Dosage: LD:0.00ML; BIR:0.85ML/H; LIR:0.51ML/H; ED:0.30ML. REMAINS AT 24 HOURS
     Route: 058
     Dates: start: 20241106
  8. CARBIDOPA\LEVODOPA [Suspect]
     Active Substance: CARBIDOPA\LEVODOPA
     Dosage: LD:0.00ML; BIR:0.83ML/H; HIR:0.83ML/H; LIR:0.48ML/H; ED:0.30ML. REMAINS AT 24 HOURS.
     Route: 058
     Dates: start: 20241011, end: 20241024
  9. BENSERAZIDE HYDROCHLORIDE\LEVODOPA [Concomitant]
     Active Substance: BENSERAZIDE HYDROCHLORIDE\LEVODOPA
     Indication: Product used for unknown indication

REACTIONS (14)
  - Living in residential institution [Recovered/Resolved]
  - Delirium [Unknown]
  - Middle insomnia [Not Recovered/Not Resolved]
  - Off label use [Not Recovered/Not Resolved]
  - Infusion site reaction [Not Recovered/Not Resolved]
  - On and off phenomenon [Not Recovered/Not Resolved]
  - Infusion site haematoma [Not Recovered/Not Resolved]
  - Cognitive disorder [Recovering/Resolving]
  - Dyskinesia [Not Recovered/Not Resolved]
  - Memory impairment [Not Recovered/Not Resolved]
  - Weight increased [Not Recovered/Not Resolved]
  - Sleep disorder [Not Recovered/Not Resolved]
  - Infusion site induration [Not Recovered/Not Resolved]
  - Psychotic disorder [Unknown]

NARRATIVE: CASE EVENT DATE: 20240101
